FAERS Safety Report 8610232-4 (Version None)
Quarter: 2012Q3

REPORT INFORMATION
  Report Type: 
  Country: None (occurrence: None)
  Receive Date: 20120810
  Receipt Date: 20120810
  Transmission Date: 20120928
  Serious: No
  Sender: FDA-Public Use
  Company Number: None

PATIENT
  Age: 48 Year
  Sex: Male

DRUGS (3)
  1. METHOTREXATE SODIUM [Suspect]
     Indication: RHEUMATOID ARTHRITIS
  2. HUMIRA [Suspect]
  3. ENBREL [Suspect]

REACTIONS (5)
  - HYPOAESTHESIA [None]
  - DEPRESSION [None]
  - ILL-DEFINED DISORDER [None]
  - DRUG INEFFECTIVE [None]
  - FEAR [None]
